FAERS Safety Report 5487524-3 (Version None)
Quarter: 2007Q4

REPORT INFORMATION
  Report Type: 
  Country: None (occurrence: None)
  Receive Date: 20071016
  Receipt Date: 20071004
  Transmission Date: 20080405
  Serious: Yes (Other)
  Sender: FDA-Public Use
  Company Number: GB-PFIZER INC-2007084406

PATIENT
  Age: 56 Year
  Sex: Female

DRUGS (3)
  1. CHAMPIX [Suspect]
     Indication: SMOKING CESSATION THERAPY
     Route: 048
  2. BENDROFLUAZIDE [Concomitant]
     Indication: HYPERTENSION
     Dosage: TEXT:2.5 MG DAILY
     Route: 048
  3. CLIMAVAL [Concomitant]
     Indication: HORMONE REPLACEMENT THERAPY
     Dosage: TEXT:1MG DAILY
     Route: 048

REACTIONS (2)
  - ACCIDENTAL OVERDOSE [None]
  - VOMITING [None]
